FAERS Safety Report 5840281-0 (Version None)
Quarter: 2008Q3

REPORT INFORMATION
  Report Type: 
  Country: None (occurrence: None)
  Receive Date: 20080811
  Receipt Date: 20080731
  Transmission Date: 20090109
  Serious: Yes (Death, Hospitalization)
  Sender: FDA-Public Use
  Company Number: CH-AVENTIS-200817331GDDC

PATIENT
  Age: 34 Year
  Sex: Female
  Weight: 70 kg

DRUGS (2)
  1. RIFATER [Suspect]
     Dosage: DOSE: 50/300/0.17/120
     Route: 048
     Dates: start: 20080605, end: 20080702
  2. ETHAMBUTOL HCL [Suspect]
     Route: 048
     Dates: start: 20080605, end: 20080702

REACTIONS (10)
  - ABDOMINAL PAIN [None]
  - GALLBLADDER DISORDER [None]
  - HEPATIC ENCEPHALOPATHY [None]
  - HEPATIC FAILURE [None]
  - HYPOGLYCAEMIA [None]
  - MENORRHAGIA [None]
  - OLIGURIA [None]
  - PROTHROMBIN TIME ABNORMAL [None]
  - PYREXIA [None]
  - TRANSAMINASES INCREASED [None]
